FAERS Safety Report 6499844-4 (Version None)
Quarter: 2009Q4

REPORT INFORMATION
  Report Type: 
  Country: None (occurrence: None)
  Receive Date: 20091214
  Receipt Date: 20091201
  Transmission Date: 20100525
  Serious: Yes (Death, Hospitalization)
  Sender: FDA-Public Use
  Company Number: 063

PATIENT
  Age: 37 Year
  Sex: Male
  Weight: 100.2449 kg

DRUGS (7)
  1. FAZACLO 100 MG ODT AZUR PHARMA (FORMERLY ALAMO PHARMACEUTICALS) [Suspect]
     Indication: SCHIZOPHRENIA, PARANOID TYPE
     Dosage: 300 MG PO DAILY
     Route: 048
     Dates: start: 20060502, end: 20060702
  2. THEOPHYLLINE [Concomitant]
  3. BENADRYL [Concomitant]
  4. MAGNESIUM OXIDE [Concomitant]
  5. TEGRETOL [Concomitant]
  6. ZYPREXA [Concomitant]
  7. COGENTIN [Concomitant]

REACTIONS (2)
  - UNRESPONSIVE TO STIMULI [None]
  - UPPER AIRWAY OBSTRUCTION [None]
